FAERS Safety Report 21240095 (Version 1)
Quarter: 2022Q3

REPORT INFORMATION
  Report Type: Spontaneous
  Country: GB (occurrence: GB)
  Receive Date: 20220822
  Receipt Date: 20220822
  Transmission Date: 20221027
  Serious: Yes (Other)
  Sender: FDA-Public Use
  Company Number: GB-MHRA-MED-202208172158570580-JRNGD

PATIENT
  Sex: Female

DRUGS (1)
  1. INDAPAMIDE [Suspect]
     Active Substance: INDAPAMIDE
     Indication: Hypertension
     Dosage: 1.5 MILLIGRAM, AM(1.5 MG PER DAY IN THE MORNING)
     Route: 065
     Dates: end: 20220808

REACTIONS (2)
  - Gout [Not Recovered/Not Resolved]
  - Product prescribing error [Unknown]
